FAERS Safety Report 8790942 (Version 1)
Quarter: 2012Q4

REPORT INFORMATION
  Report Type: Spontaneous
  Country: KR (occurrence: None)
  Receive Date: 20120907
  Receipt Date: 20120907
  Transmission Date: 20130627
  Serious: Yes (Other)
  Sender: FDA-Public Use
  Company Number: DSA_59268_2012

PATIENT

DRUGS (3)
  1. FLUOROURACIL (FLUOROURACIL) [Suspect]
     Indication: CERVIX CARCINOMA STAGE IV
  2. CISPLATIN [Suspect]
     Indication: CERVIX CARCINOMA STAGE IV
  3. THERAPEUTIC RADIOPHARMACEUTICALS (THERAPEUTIC RADIOPHARMACEUTICALS) [Suspect]
     Indication: CERVIX CARCINOMA STAGE IV
     Dosage: (DF)

REACTIONS (1)
  - Thrombocytopenia [None]
